FAERS Safety Report 8506237-4 (Version None)
Quarter: 2012Q3

REPORT INFORMATION
  Report Type: 
  Country: None (occurrence: None)
  Receive Date: 20120712
  Receipt Date: 20120627
  Transmission Date: 20120928
  Serious: Yes (Congenital Anomaly, Other)
  Sender: FDA-Public Use
  Company Number: IL-WATSON-2012-11810

PATIENT

DRUGS (3)
  1. CLARITHROMYCIN [Suspect]
     Indication: PRODUCT USED FOR UNKNOWN INDICATION
     Dosage: UNK
     Route: 064
  2. TERBINAFINE HCL [Suspect]
     Indication: PRODUCT USED FOR UNKNOWN INDICATION
     Dosage: UNK
     Route: 064
  3. OXAZEPAM [Suspect]
     Indication: PRODUCT USED FOR UNKNOWN INDICATION
     Dosage: UNK
     Route: 064

REACTIONS (5)
  - HYPOGLYCAEMIA [None]
  - HYDRONEPHROSIS [None]
  - TRACHEOMALACIA [None]
  - LARYNGOMALACIA [None]
  - FOETAL EXPOSURE DURING PREGNANCY [None]
